FAERS Safety Report 8523831 (Version 20)
Quarter: 2013Q4

REPORT INFORMATION
  Report Type: Report from Study
  Country: CA (occurrence: CA)
  Receive Date: 20120420
  Receipt Date: 20131209
  Transmission Date: 20140711
  Serious: Yes (Hospitalization, Other)
  Sender: FDA-Public Use
  Company Number: CA-ROCHE-1051921

PATIENT
  Age: 79 Year
  Sex: Female
  Weight: 90.7 kg

DRUGS (14)
  1. ZELBORAF [Suspect]
     Indication: METASTATIC MALIGNANT MELANOMA
     Route: 048
     Dates: start: 20120309
  2. ZELBORAF [Suspect]
     Route: 048
     Dates: start: 201203
  3. ZELBORAF [Suspect]
     Route: 048
     Dates: end: 201211
  4. ZELBORAF [Suspect]
     Route: 048
     Dates: start: 2012, end: 20130121
  5. ZELBORAF [Suspect]
     Route: 048
     Dates: start: 201302
  6. ZELBORAF [Suspect]
     Route: 048
     Dates: start: 2013
  7. ZELBORAF [Suspect]
     Route: 048
     Dates: start: 201209
  8. ZELBORAF [Suspect]
     Route: 048
     Dates: start: 201305
  9. ZELBORAF [Suspect]
     Route: 048
     Dates: end: 20130412
  10. ZELBORAF [Suspect]
     Route: 048
     Dates: start: 201305, end: 2013
  11. BABY ASPIRIN [Concomitant]
  12. ASPIRIN [Concomitant]
     Indication: ANTICOAGULANT THERAPY
     Route: 048
  13. TYLENOL [Concomitant]
     Indication: PAIN
     Route: 048
  14. AMLODIPINE [Concomitant]
     Route: 048

REACTIONS (40)
  - Pneumonia [Recovering/Resolving]
  - Lower respiratory tract infection [Recovered/Resolved]
  - Back pain [Unknown]
  - Dehydration [Unknown]
  - Dyspnoea [Recovered/Resolved]
  - Pain in extremity [Not Recovered/Not Resolved]
  - Hyperkeratosis [Not Recovered/Not Resolved]
  - Cough [Recovered/Resolved]
  - Gait disturbance [Recovering/Resolving]
  - Arthritis [Unknown]
  - Disease progression [Unknown]
  - Brain neoplasm [Recovering/Resolving]
  - Neoplasm malignant [Not Recovered/Not Resolved]
  - Burning sensation [Unknown]
  - Eye swelling [Not Recovered/Not Resolved]
  - Ulcer haemorrhage [Recovering/Resolving]
  - Inguinal mass [Not Recovered/Not Resolved]
  - Local swelling [Recovering/Resolving]
  - Skin ulcer [Unknown]
  - Vertigo [Recovered/Resolved]
  - Dizziness [Recovered/Resolved]
  - Hypertension [Unknown]
  - Rash [Recovering/Resolving]
  - Fatigue [Recovering/Resolving]
  - Sunburn [Unknown]
  - Mass [Not Recovered/Not Resolved]
  - Weight decreased [Unknown]
  - Erythema [Recovering/Resolving]
  - Lacrimation increased [Recovered/Resolved]
  - Erythema [Unknown]
  - Nerve injury [Not Recovered/Not Resolved]
  - Inflammation [Recovering/Resolving]
  - Asthenia [Recovered/Resolved]
  - Dizziness [Recovered/Resolved]
  - Dehydration [Recovered/Resolved]
  - Stress [Not Recovered/Not Resolved]
  - Anger [Not Recovered/Not Resolved]
  - Malaise [Unknown]
  - Nasopharyngitis [Recovering/Resolving]
  - Drug ineffective [Unknown]
